FAERS Safety Report 13364160 (Version 1)
Quarter: 2017Q1

REPORT INFORMATION
  Report Type: Spontaneous
  Country: US (occurrence: US)
  Receive Date: 20170322
  Receipt Date: 20170322
  Transmission Date: 20170429
  Serious: No
  Sender: FDA-Public Use
  Company Number: None

PATIENT
  Age: 81 Year
  Sex: Female

DRUGS (17)
  1. NAMENDA [Concomitant]
     Active Substance: MEMANTINE HYDROCHLORIDE
  2. VIACTIV [Concomitant]
     Active Substance: CALCIUM\VITAMIN D\VITAMIN K5
  3. NUPLAZID [Suspect]
     Active Substance: PIMAVANSERIN TARTRATE
     Indication: PSYCHOTIC DISORDER
     Dosage: 2 TABS (34MG) PO DAILY
     Route: 048
     Dates: start: 201609, end: 20170301
  4. MIRALAX [Concomitant]
     Active Substance: POLYETHYLENE GLYCOL 3350
  5. PROBIOTIC [Concomitant]
     Active Substance: PROBIOTICS NOS
  6. ASA [Concomitant]
     Active Substance: ASPIRIN
  7. NUPLAZID [Suspect]
     Active Substance: PIMAVANSERIN TARTRATE
     Indication: HALLUCINATION
     Dosage: 2 TABS (34MG) PO DAILY
     Route: 048
     Dates: start: 201609, end: 20170301
  8. MINERAL OIL. [Concomitant]
     Active Substance: MINERAL OIL
  9. EXELON [Concomitant]
     Active Substance: RIVASTIGMINE TARTRATE
  10. PROTONIX [Concomitant]
     Active Substance: PANTOPRAZOLE SODIUM
  11. CITALOPRAM [Concomitant]
     Active Substance: CITALOPRAM HYDROBROMIDE
  12. CLONAZEPAM. [Concomitant]
     Active Substance: CLONAZEPAM
  13. AMITIZA [Concomitant]
     Active Substance: LUBIPROSTONE
  14. SOLAE [Concomitant]
  15. RYTARY [Concomitant]
     Active Substance: CARBIDOPA\LEVODOPA
  16. ISOSORB [Concomitant]
  17. FLECTOR [Concomitant]
     Active Substance: DICLOFENAC EPOLAMINE

REACTIONS (2)
  - Urinary tract infection [None]
  - Calculus bladder [None]

NARRATIVE: CASE EVENT DATE: 20170301
